FAERS Safety Report 20868688 (Version 1)
Quarter: 2022Q2

REPORT INFORMATION
  Report Type: Spontaneous
  Country: US (occurrence: US)
  Receive Date: 20220524
  Receipt Date: 20220524
  Transmission Date: 20220721
  Serious: No
  Sender: FDA-Public Use
  Company Number: US-PFIZER INC-202200633184

PATIENT
  Age: 67 Year
  Sex: Female

DRUGS (3)
  1. TIKOSYN [Interacting]
     Active Substance: DOFETILIDE
     Dosage: 250 UG, 2X/DAY
  2. DIFLUCAN [Interacting]
     Active Substance: FLUCONAZOLE
     Dosage: UNK (QUANTITY: 3; DAYS^ SUPPLY: 3)
  3. CITALOPRAM [Interacting]
     Active Substance: CITALOPRAM HYDROBROMIDE
     Dosage: UNK

REACTIONS (2)
  - Drug interaction [Unknown]
  - Contraindicated product prescribed [Unknown]
